FAERS Safety Report 5223329-6 (Version None)
Quarter: 2007Q1

REPORT INFORMATION
  Report Type: 
  Country: None (occurrence: None)
  Receive Date: 20061201
  Receipt Date: 20060719
  Transmission Date: 20070707
  Serious: No
  Sender: FDA-Public Use
  Company Number: 2006PV017886

PATIENT
  Age: 66 Year
  Sex: Male
  Weight: 68.9467 kg

DRUGS (4)
  1. BYETTA [Suspect]
     Indication: DIABETES MELLITUS NON-INSULIN-DEPENDENT
     Dosage: 10 MCG;BID;SC 5 MCG;BID;SC
     Route: 058
     Dates: start: 20060523, end: 20060621
  2. BYETTA [Suspect]
     Indication: DIABETES MELLITUS NON-INSULIN-DEPENDENT
     Dosage: 10 MCG;BID;SC 5 MCG;BID;SC
     Route: 058
     Dates: start: 20060621
  3. GLUCOPHAGE [Concomitant]
  4. LANTUS [Concomitant]

REACTIONS (4)
  - DIZZINESS [None]
  - FEELING HOT AND COLD [None]
  - NAUSEA [None]
  - NERVOUSNESS [None]
